FAERS Safety Report 19823594 (Version 7)
Quarter: 2022Q1

REPORT INFORMATION
  Report Type: Spontaneous
  Country: US (occurrence: US)
  Receive Date: 20210913
  Receipt Date: 20220118
  Transmission Date: 20220423
  Serious: Yes (Hospitalization, Other)
  Sender: FDA-Public Use
  Company Number: US-PARI RESPIRATORY EQUIPMENT, INC.-2021PAR00043

PATIENT
  Sex: Male
  Weight: 11.429 kg

DRUGS (12)
  1. KITABIS PAK [Suspect]
     Active Substance: TOBRAMYCIN
     Indication: Cystic fibrosis
     Dosage: 300 MG (5 ML) VIA NEBULLIZER, 2X/DAY FOR 28 DAYS
     Dates: start: 20210519, end: 202105
  2. KITABIS PAK [Suspect]
     Active Substance: TOBRAMYCIN
     Indication: Respiratory disorder
     Dosage: UNK, 2X/DAY FOR 3 MONTHS UNINTERRUPTED
     Dates: start: 202110
  3. KITABIS PAK [Suspect]
     Active Substance: TOBRAMYCIN
     Indication: Pseudomonas infection
  4. KALYDECO [Concomitant]
     Active Substance: IVACAFTOR
  5. CIPRO [Concomitant]
     Active Substance: CIPROFLOXACIN HYDROCHLORIDE
  6. SYNAGIS [Concomitant]
     Active Substance: PALIVIZUMAB
  7. HYPER-SAL NEB [Concomitant]
  8. VITAMINS [Concomitant]
     Active Substance: VITAMINS
  9. FAMOTIDINE POWDER [Concomitant]
  10. OMEPRAZOLE POWDER [Concomitant]
  11. PULMOZYME [Concomitant]
     Active Substance: DORNASE ALFA
  12. ALBUTEROL SULFATE [Concomitant]
     Active Substance: ALBUTEROL SULFATE

REACTIONS (3)
  - Pseudomonas infection [Recovered/Resolved]
  - Ear infection [Not Recovered/Not Resolved]
  - Off label use [Not Recovered/Not Resolved]

NARRATIVE: CASE EVENT DATE: 20210101
